FAERS Safety Report 9380331 (Version 4)
Quarter: 2016Q1

REPORT INFORMATION
  Report Type: Spontaneous
  Country: US (occurrence: US)
  Receive Date: 20130702
  Receipt Date: 20160215
  Transmission Date: 20160526
  Serious: Yes (Other)
  Sender: FDA-Public Use
  Company Number: US-009507513-98030041

PATIENT
  Sex: Male

DRUGS (6)
  1. FINASTERIDE. [Suspect]
     Active Substance: FINASTERIDE
     Dosage: 5 MG, 1/4 TAB PO EVERY OTHER DAY
     Route: 048
     Dates: start: 20100503, end: 20110502
  2. FINASTERIDE. [Suspect]
     Active Substance: FINASTERIDE
     Indication: ANDROGENETIC ALOPECIA
     Dosage: 1 MG, UNK
     Route: 048
     Dates: start: 20070211, end: 20110502
  3. FINASTERIDE. [Suspect]
     Active Substance: FINASTERIDE
     Dosage: 5 MG, UNK
     Route: 048
     Dates: start: 20070211, end: 20090805
  4. PROPECIA [Suspect]
     Active Substance: FINASTERIDE
     Indication: ANDROGENETIC ALOPECIA
     Dosage: 1 MG, QD
     Route: 048
     Dates: start: 199803, end: 20061218
  5. ROGAINE [Concomitant]
     Active Substance: MINOXIDIL
     Dosage: UNK %, UNK
  6. PROPECIA [Suspect]
     Active Substance: FINASTERIDE
     Dosage: 1 MG, QOD
     Route: 048
     Dates: end: 2011

REACTIONS (13)
  - Anxiety [Unknown]
  - Wrong technique in product usage process [Unknown]
  - Suicidal ideation [Unknown]
  - Cognitive disorder [Unknown]
  - Dysuria [Unknown]
  - Drug administration error [Unknown]
  - Drug administration error [Unknown]
  - Sexual dysfunction [Unknown]
  - Semen volume decreased [Unknown]
  - Libido decreased [Unknown]
  - Orgasm abnormal [Unknown]
  - Depression [Unknown]
  - Erectile dysfunction [Unknown]

NARRATIVE: CASE EVENT DATE: 20100503
